FAERS Safety Report 8789870 (Version 2)
Quarter: 2012Q4

REPORT INFORMATION
  Report Type: 
  Country: JP (occurrence: JP)
  Receive Date: 20120917
  Receipt Date: 20120924
  Transmission Date: 20130627
  Serious: Yes (Death)
  Sender: FDA-Public Use
  Company Number: JP-PFIZER INC-2012204155

PATIENT
  Age: 89 Year
  Sex: Male

DRUGS (4)
  1. ZYVOX [Suspect]
     Dosage: 600 mg, 1x/day
     Route: 041
     Dates: start: 20120813, end: 20120813
  2. ZYVOX [Suspect]
     Dosage: 600 mg, 2x/day
     Route: 041
     Dates: start: 20120814, end: 20120819
  3. ZYVOX [Suspect]
     Dosage: 600 mg, 1x/day
     Route: 041
     Dates: start: 20120820, end: 20120820
  4. TARGOCID [Concomitant]

REACTIONS (2)
  - Hyponatraemia [Unknown]
  - Pneumonia aspiration [Fatal]
